FAERS Safety Report 9792599 (Version 1)
Quarter: 2014Q1

REPORT INFORMATION
  Report Type: Spontaneous
  Country: US (occurrence: US)
  Receive Date: 20140102
  Receipt Date: 20140102
  Transmission Date: 20141002
  Serious: No
  Sender: FDA-Public Use
  Company Number: US-SA-2013SA100666

PATIENT
  Age: 88 Year
  Sex: Female

DRUGS (7)
  1. AUBAGIO [Suspect]
     Indication: MULTIPLE SCLEROSIS
     Route: 048
     Dates: start: 20130731
  2. AUBAGIO [Suspect]
     Indication: MULTIPLE SCLEROSIS
     Route: 048
     Dates: start: 20130731
  3. CADUET [Concomitant]
     Route: 065
  4. CALCIUM CARBONATE [Concomitant]
  5. MULTIVITAMINS [Concomitant]
  6. VITAMIN B COMPLEX [Concomitant]
  7. VITAMIN D [Concomitant]

REACTIONS (5)
  - Colitis ulcerative [Not Recovered/Not Resolved]
  - Diarrhoea [Not Recovered/Not Resolved]
  - Abdominal discomfort [Unknown]
  - Depression [Unknown]
  - Nausea [Unknown]
